FAERS Safety Report 8297239-4 (Version None)
Quarter: 2012Q2

REPORT INFORMATION
  Report Type: 
  Country: None (occurrence: None)
  Receive Date: 20120419
  Receipt Date: 20120411
  Transmission Date: 20120825
  Serious: Yes (Hospitalization)
  Sender: FDA-Public Use
  Company Number: GB-ACCORD-013113

PATIENT
  Age: 76 Year
  Sex: Female
  Weight: 55 kg

DRUGS (8)
  1. RAMIPRIL [Suspect]
     Dosage: IN THE MORNING.
     Route: 048
     Dates: end: 20120305
  2. SPIRIVA [Concomitant]
     Dosage: ONGOING.
     Route: 055
  3. ASPIRIN [Concomitant]
     Route: 048
     Dates: end: 20120305
  4. CIPROFLOXACIN [Suspect]
     Indication: LIVER ABSCESS
     Route: 048
     Dates: start: 20120216, end: 20120305
  5. SIMVASTATIN [Suspect]
     Dosage: AT NIGHT
     Route: 048
     Dates: end: 20120305
  6. LANSOPRAZOLE [Concomitant]
     Route: 048
     Dates: end: 20120305
  7. FLUTICASONE PROPIONATE/SALMETEROL [Concomitant]
     Dosage: 500 MICROGRAM/ 50 MICROGRAM STRENGTH. ONE PUFF TWICE DAILY. ONGOING.
     Route: 055
  8. FUROSEMIDE [Concomitant]
     Dosage: IN THE MORNING.
     Route: 048
     Dates: end: 20120305

REACTIONS (3)
  - RENAL FAILURE ACUTE [None]
  - DEHYDRATION [None]
  - OFF LABEL USE [None]
